FAERS Safety Report 7445627-8 (Version None)
Quarter: 2011Q2

REPORT INFORMATION
  Report Type: 
  Country: None (occurrence: None)
  Receive Date: 20110429
  Receipt Date: 20110425
  Transmission Date: 20111010
  Serious: Yes (Other)
  Sender: FDA-Public Use
  Company Number: JP-ROCHE-773588

PATIENT
  Sex: Female

DRUGS (3)
  1. EXCEGRAN [Concomitant]
     Dosage: DOSE FORM: PERORAL AGENT, NOTE: DOSAGE IS UNCERTAIN.
     Route: 048
  2. RIVOTRIL [Suspect]
     Dosage: NOTE: DOSAGE IS UNCERTAIN, DOSE FORM: PERORAL AGENT.
     Route: 048
  3. DEPAKENE [Concomitant]
     Dosage: DOSE FORM: PERORAL AGENT, NOTE: DOSAGE IS UNCERTAIN.
     Route: 048

REACTIONS (2)
  - AUTISM [None]
  - DRUG EXPOSURE DURING PREGNANCY [None]
